FAERS Safety Report 7169981-X (Version None)
Quarter: 2010Q4

REPORT INFORMATION
  Report Type: 
  Country: None (occurrence: None)
  Receive Date: 20101206
  Receipt Date: 20101129
  Transmission Date: 20110411
  Serious: Yes (Other)
  Sender: FDA-Public Use
  Company Number: OMPQ-NO-1011S-1031

PATIENT
  Age: 28 Year
  Sex: Male

DRUGS (5)
  1. OMNIPAQUE 140 [Suspect]
     Indication: PRODUCT USED FOR UNKNOWN INDICATION
     Dosage: 50 ML, SINGLE DOSE, I.V.
     Route: 042
     Dates: start: 20101101, end: 20101101
  2. CEPHOTAXIM [Concomitant]
  3. GENTAMICIN SULFATE (GENTAMYCIN) [Concomitant]
  4. HEPARIN [Concomitant]
  5. CIPROFLOXACIN HYDROCHLORIDE (CIPROLET) [Concomitant]

REACTIONS (3)
  - ASTHENIA [None]
  - CONVULSION [None]
  - LOSS OF CONSCIOUSNESS [None]
